FAERS Safety Report 6790561-X (Version None)
Quarter: 2010Q2

REPORT INFORMATION
  Report Type: 
  Country: None (occurrence: None)
  Receive Date: 20100624
  Receipt Date: 20100621
  Transmission Date: 20101027
  Serious: Yes (Hospitalization, Other)
  Sender: FDA-Public Use
  Company Number: BE-ROCHE-710295

PATIENT
  Age: 19 Year
  Sex: Male

DRUGS (3)
  1. GANCICLOVIR SODIUM [Suspect]
     Route: 042
  2. METHYLPREDNISOLONE [Suspect]
     Dosage: FOR A WEEK
     Route: 042
  3. METHYLPREDNISOLONE [Suspect]
     Dosage: DOSE TAPERED
     Route: 042

REACTIONS (4)
  - BRONCHOPULMONARY ASPERGILLOSIS [None]
  - DIABETES MELLITUS [None]
  - NEUTROPENIA [None]
  - PSEUDOMONAS INFECTION [None]
